FAERS Safety Report 20148439 (Version 1)
Quarter: 2021Q4

REPORT INFORMATION
  Report Type: Spontaneous
  Country: FR (occurrence: FR)
  Receive Date: 20211204
  Receipt Date: 20211204
  Transmission Date: 20220303
  Serious: Yes (Other)
  Sender: FDA-Public Use
  Company Number: FR-NOVARTISPH-NVSC2021FR273007

PATIENT
  Age: 82 Year
  Sex: Female

DRUGS (4)
  1. VALSARTAN [Suspect]
     Active Substance: VALSARTAN
     Indication: Product used for unknown indication
     Dosage: 80 MG (EVERY MORNING AND EVENING)
     Route: 065
     Dates: start: 201311
  2. VALSARTAN [Suspect]
     Active Substance: VALSARTAN
     Dosage: 80 MG (EVERY MORNING AND EVENING)
     Route: 065
     Dates: start: 2015
  3. ACEBUTOLOL [Concomitant]
     Active Substance: ACEBUTOLOL
     Indication: Product used for unknown indication
     Dosage: 1/2 TABLET IN THE MORNING AND IN THE EVENING)
     Route: 065
     Dates: start: 1987
  4. HYDROCHLOROTHIAZIDE [Concomitant]
     Active Substance: HYDROCHLOROTHIAZIDE
     Indication: Product used for unknown indication
     Dosage: 1 DOSAGE FORM
     Route: 065

REACTIONS (3)
  - Hypertension [Unknown]
  - Renal artery stenosis [Unknown]
  - Azotaemia [Unknown]

NARRATIVE: CASE EVENT DATE: 20210825
